FAERS Safety Report 7569087-1 (Version None)
Quarter: 2011Q2

REPORT INFORMATION
  Report Type: 
  Country: None (occurrence: None)
  Receive Date: 20110623
  Receipt Date: 20110615
  Transmission Date: 20111010
  Serious: Yes (Other)
  Sender: FDA-Public Use
  Company Number: US-US-EMD SERONO, INC.-232277J10USA

PATIENT
  Sex: Female
  Weight: 122 kg

DRUGS (6)
  1. REQUIP [Concomitant]
     Indication: RESTLESS LEGS SYNDROME
     Route: 048
     Dates: start: 20060602
  2. PAXIL [Concomitant]
     Indication: DEPRESSION
     Dates: start: 20080612
  3. REBIF [Suspect]
     Indication: MULTIPLE SCLEROSIS
     Route: 058
     Dates: start: 20060920
  4. TOPROL-XL [Concomitant]
  5. BACLOFEN [Concomitant]
     Indication: MULTIPLE SCLEROSIS
  6. UNSPECIFIED MUSCLE RELAXER [Concomitant]

REACTIONS (4)
  - PAIN [None]
  - DEPRESSION [None]
  - ENCHONDROMA [None]
  - OSTEOARTHRITIS [None]
